FAERS Safety Report 12870778 (Version 1)
Quarter: 2016Q4

REPORT INFORMATION
  Report Type: Report from Study
  Country: US (occurrence: KR)
  Receive Date: 20161021
  Receipt Date: 20161021
  Transmission Date: 20170207
  Serious: Yes (Death, Hospitalization)
  Sender: FDA-Public Use
  Company Number: US-SA-2016SA190677

PATIENT
  Age: 65 Year
  Sex: Male
  Weight: 72 kg

DRUGS (21)
  1. OXALIPLATIN. [Suspect]
     Active Substance: OXALIPLATIN
     Indication: ADENOCARCINOMA GASTRIC
     Route: 042
     Dates: start: 20151217, end: 20160707
  2. KOMBIGLYZE XR [Concomitant]
     Active Substance: METFORMIN HYDROCHLORIDE\SAXAGLIPTIN HYDROCHLORIDE
     Route: 065
     Dates: start: 20151206
  3. APETROL [Concomitant]
     Route: 065
     Dates: start: 20160411
  4. PENID [Concomitant]
     Route: 065
     Dates: start: 20151206
  5. EASY DUPHALAC [Concomitant]
     Dates: start: 20151206
  6. MAGNESIUM OXIDE. [Concomitant]
     Active Substance: MAGNESIUM OXIDE
     Route: 065
     Dates: start: 20151206
  7. ACTOS [Concomitant]
     Active Substance: PIOGLITAZONE HYDROCHLORIDE
     Route: 065
     Dates: start: 20151206, end: 20160716
  8. LIPILOU [Concomitant]
     Route: 065
     Dates: start: 20151206
  9. MIRAPEX [Concomitant]
     Active Substance: PRAMIPEXOLE DIHYDROCHLORIDE
     Route: 065
     Dates: start: 20151206
  10. SODIUM BICARBONATE. [Concomitant]
     Active Substance: SODIUM BICARBONATE
     Route: 065
     Dates: start: 20151204
  11. PK-MERZ [Concomitant]
     Active Substance: AMANTADINE
     Route: 065
     Dates: start: 20151206
  12. BLINDED THERAPY [Suspect]
     Active Substance: INVESTIGATIONAL PRODUCT
     Indication: ADENOCARCINOMA GASTRIC
     Route: 065
     Dates: start: 20151217, end: 20160707
  13. GANAKHAN [Concomitant]
     Route: 065
     Dates: start: 20151204
  14. MADOPAR [Concomitant]
     Active Substance: BENSERAZIDE HYDROCHLORIDE\LEVODOPA
     Route: 065
     Dates: start: 20151206
  15. LEVOCETIRIZINE HYDROCHLORIDE [Concomitant]
     Active Substance: LEVOCETIRIZINE HYDROCHLORIDE
     Route: 065
     Dates: start: 20151206
  16. FEROBA [Concomitant]
     Active Substance: FERROUS SULFATE\PROTEASE
     Route: 065
     Dates: start: 20151210, end: 20160716
  17. DENOGAN [Concomitant]
     Active Substance: PROPACETAMOL HYDROCHLORIDE
     Route: 065
     Dates: start: 20160711, end: 20160711
  18. INVESTIGATIONAL DRUG [Suspect]
     Active Substance: INVESTIGATIONAL PRODUCT
     Indication: ADENOCARCINOMA GASTRIC
     Route: 048
     Dates: start: 20151217, end: 20160707
  19. ULCERLMIN [Concomitant]
     Active Substance: SUCRALFATE
     Route: 065
     Dates: start: 20151204
  20. AZILECT [Concomitant]
     Active Substance: RASAGILINE MESYLATE
     Route: 065
     Dates: start: 20151206, end: 20160802
  21. RIVOTRIL [Concomitant]
     Active Substance: CLONAZEPAM
     Route: 065
     Dates: start: 20151206, end: 20160804

REACTIONS (1)
  - Pneumonitis [Fatal]

NARRATIVE: CASE EVENT DATE: 20160711
